FAERS Safety Report 11777923 (Version 1)
Quarter: 2015Q4

REPORT INFORMATION
  Report Type: Spontaneous
  Country: US (occurrence: US)
  Receive Date: 20151125
  Receipt Date: 20151125
  Transmission Date: 20160304
  Serious: Yes (Hospitalization, Other)
  Sender: FDA-Public Use
  Company Number: US-CEDAR PHARMACEUTICALS-2015CDR00011

PATIENT
  Age: 18 Year
  Sex: Female

DRUGS (2)
  1. METHIMAZOLE. [Suspect]
     Active Substance: METHIMAZOLE
     Indication: BASEDOW^S DISEASE
     Dosage: 15 MG, 1X/DAY
     Route: 065
  2. METHIMAZOLE. [Suspect]
     Active Substance: METHIMAZOLE
     Indication: BASEDOW^S DISEASE
     Dosage: 40 MG, 1X/DAY

REACTIONS (11)
  - Febrile neutropenia [Recovered/Resolved]
  - Thyrotoxic crisis [Recovered/Resolved]
  - Thrombocytopenia [Recovered/Resolved]
  - Systemic candida [Recovered/Resolved]
  - Reticulocytopenia [Recovered/Resolved]
  - Cerebral venous thrombosis [Recovered/Resolved]
  - Periorbital cellulitis [Recovered/Resolved]
  - Anaemia [Recovered/Resolved]
  - Toxicity to various agents [Recovered/Resolved]
  - Agranulocytosis [Recovered/Resolved]
  - Bone marrow disorder [Recovered/Resolved]
